FAERS Safety Report 25908386 (Version 2)
Quarter: 2025Q4

REPORT INFORMATION
  Report Type: Spontaneous
  Country: EU (occurrence: EU)
  Receive Date: 20251010
  Receipt Date: 20251016
  Transmission Date: 20260119
  Serious: Yes (Death)
  Sender: NOVARTIS
  Company Number: EU-002147023-NVSC2025GR157517

PATIENT
  Age: 60 Year
  Sex: Male

DRUGS (1)
  1. LEQVIO [Suspect]
     Active Substance: INCLISIRAN SODIUM
     Indication: Dyslipidaemia
     Dosage: 284 MG, (RECEIVED 2 DOSES)
     Route: 058
     Dates: start: 2025

REACTIONS (1)
  - Myocardial infarction [Fatal]

NARRATIVE: CASE EVENT DATE: 20250901
